FAERS Safety Report 4862011-1 (Version None)
Quarter: 2005Q4

REPORT INFORMATION
  Report Type: 
  Country: None (occurrence: None)
  Receive Date: 20051129
  Receipt Date: 20050920
  Transmission Date: 20060501
  Serious: Yes (Other)
  Sender: FDA-Public Use
  Company Number: WAES 0509USA02828

PATIENT
  Sex: Male

DRUGS (2)
  1. VYTORIN [Suspect]
     Dosage: PO
     Route: 048
     Dates: end: 20050917
  2. FENOFIBRATE MSD [Concomitant]

REACTIONS (1)
  - RHABDOMYOLYSIS [None]
